FAERS Safety Report 20095983 (Version 1)
Quarter: 2021Q4

REPORT INFORMATION
  Report Type: Spontaneous
  Country: US (occurrence: None)
  Receive Date: 20211119
  Receipt Date: 20211119
  Transmission Date: 20220303
  Serious: Yes (Other)
  Sender: FDA-Public Use
  Company Number: None

PATIENT
  Age: 56 Year
  Sex: Female
  Weight: 83.46 kg

DRUGS (2)
  1. CASIRIVIMAB\IMDEVIMAB [Suspect]
     Active Substance: CASIRIVIMAB\IMDEVIMAB
     Dosage: OTHER FREQUENCY : ONE TIME DOSE;?
     Route: 042
     Dates: start: 20211119, end: 20211119
  2. CASIRIVIMAB\IMDEVIMAB [Concomitant]
     Active Substance: CASIRIVIMAB\IMDEVIMAB
     Dates: start: 20211119, end: 20211119

REACTIONS (10)
  - Feeling abnormal [None]
  - Feeling hot [None]
  - Dyspnoea [None]
  - Throat tightness [None]
  - Disorientation [None]
  - Neck pain [None]
  - Spinal pain [None]
  - Back pain [None]
  - Vision blurred [None]
  - Depressed level of consciousness [None]

NARRATIVE: CASE EVENT DATE: 20211119
